FAERS Safety Report 21281369 (Version 1)
Quarter: 2022Q3

REPORT INFORMATION
  Report Type: Spontaneous
  Country: US (occurrence: US)
  Receive Date: 20220901
  Receipt Date: 20220901
  Transmission Date: 20221027
  Serious: Yes (Other)
  Sender: FDA-Public Use
  Company Number: US-ABBVIE-22K-163-4471702-00

PATIENT

DRUGS (1)
  1. HUMIRA [Suspect]
     Active Substance: ADALIMUMAB
     Indication: Product used for unknown indication
     Route: 058

REACTIONS (10)
  - Cataract [Unknown]
  - Syringe issue [Unknown]
  - Malaise [Unknown]
  - Rash [Unknown]
  - Eye infection [Unknown]
  - Psoriasis [Unknown]
  - Abdominal discomfort [Unknown]
  - Eye pain [Unknown]
  - Rash vesicular [Unknown]
  - Pain in extremity [Unknown]
